FAERS Safety Report 9981246 (Version 1)
Quarter: 2014Q1

REPORT INFORMATION
  Report Type: Spontaneous
  Country: US (occurrence: None)
  Receive Date: 20140305
  Receipt Date: 20140305
  Transmission Date: 20141002
  Serious: Yes (Death, Hospitalization)
  Sender: FDA-Public Use
  Company Number: 2014AP001647

PATIENT
  Age: 66 Year
  Sex: Male
  Weight: 82 kg

DRUGS (1)
  1. FERRIPROX (500 MG) [Suspect]
     Indication: HAEMOCHROMATOSIS
     Route: 048
     Dates: start: 20130412

REACTIONS (1)
  - Myelofibrosis [None]
